FAERS Safety Report 8671517 (Version 2)
Quarter: 2013Q4

REPORT INFORMATION
  Report Type: Spontaneous
  Country: US (occurrence: US)
  Receive Date: 20120718
  Receipt Date: 20131101
  Transmission Date: 20140711
  Serious: No
  Sender: FDA-Public Use
  Company Number: US-009507513-1109USA00240

PATIENT
  Age: 66 Year
  Sex: Female
  Weight: 44.45 kg

DRUGS (2)
  1. SINEMET [Suspect]
     Indication: PARKINSON^S DISEASE
     Dosage: 12-14 TABLETS PER DAY
     Route: 048
     Dates: start: 1994
  2. EVISTA [Concomitant]

REACTIONS (11)
  - Restless legs syndrome [Recovered/Resolved]
  - Overdose [Unknown]
  - Diarrhoea [Recovered/Resolved]
  - Musculoskeletal stiffness [Recovered/Resolved]
  - Tremor [Recovered/Resolved]
  - Paraesthesia [Recovered/Resolved]
  - Muscle spasms [Recovered/Resolved]
  - Dysphagia [Recovered/Resolved]
  - Wrong technique in drug usage process [Unknown]
  - Chest discomfort [Recovered/Resolved]
  - Product physical issue [Unknown]
